FAERS Safety Report 9836503 (Version 3)
Quarter: 2014Q2

REPORT INFORMATION
  Report Type: Report from Study
  Country: US (occurrence: US)
  Receive Date: 20140123
  Receipt Date: 20140401
  Transmission Date: 20141212
  Serious: Yes (Hospitalization)
  Sender: FDA-Public Use
  Company Number: US-ALEXION-A201303593

PATIENT
  Age: 24 Year
  Sex: Female
  Weight: 101 kg

DRUGS (10)
  1. ECULIZUMAB [Suspect]
     Indication: HAEMOLYTIC URAEMIC SYNDROME
     Dosage: 900 MG, QMONTH
     Route: 042
     Dates: start: 20090807, end: 20091005
  2. ECULIZUMAB [Suspect]
     Dosage: 1200 MG, Q2W
     Route: 042
     Dates: start: 20091006
  3. PROGRAF [Concomitant]
     Indication: IMMUNOSUPPRESSION
     Dosage: UNK
     Route: 048
     Dates: start: 200906
  4. AZATHIOPRINE [Concomitant]
     Indication: IMMUNOSUPPRESSION
     Dosage: UNK
     Route: 048
     Dates: start: 200906
  5. PREDNISONE [Concomitant]
     Indication: IMMUNOSUPPRESSION
     Dosage: UNK
     Route: 048
     Dates: start: 2009
  6. METOCLOPRAMIDE [Concomitant]
     Indication: NAUSEA
     Dosage: UNK
     Route: 048
  7. NEXIUM                             /01479302/ [Concomitant]
     Indication: PROPHYLAXIS
     Dosage: UNK
     Route: 048
  8. SENSIPAR [Concomitant]
     Indication: HYPERCALCAEMIA
     Route: 048
  9. VALCYTE [Concomitant]
     Indication: PROPHYLAXIS
     Dosage: UNK
     Route: 048
  10. CITALOPRAM ALTER                   /00582602/ [Concomitant]
     Indication: DEPRESSION
     Dosage: UNK
     Route: 048

REACTIONS (1)
  - Gastritis [Recovered/Resolved]
